FAERS Safety Report 14104013 (Version 1)
Quarter: 2017Q4

REPORT INFORMATION
  Report Type: Spontaneous
  Country: US (occurrence: US)
  Receive Date: 20171018
  Receipt Date: 20171018
  Transmission Date: 20180321
  Serious: No
  Sender: FDA-Public Use
  Company Number: US-AMGEN-USASP2017098546

PATIENT
  Age: 75 Year
  Sex: Female

DRUGS (2)
  1. CORTIZONE 10 [Concomitant]
     Active Substance: HYDROCORTISONE
  2. PROLIA [Suspect]
     Active Substance: DENOSUMAB
     Indication: PRODUCT USED FOR UNKNOWN INDICATION
     Dosage: UNK
     Route: 065

REACTIONS (5)
  - Blood cholesterol increased [Unknown]
  - Nail disorder [Unknown]
  - Arthritis [Not Recovered/Not Resolved]
  - Onychoclasis [Unknown]
  - Muscle spasms [Unknown]
